FAERS Safety Report 5030467-X (Version None)
Quarter: 2006Q2

REPORT INFORMATION
  Report Type: 
  Country: None (occurrence: None)
  Receive Date: 20060620
  Receipt Date: 20050223
  Transmission Date: 20061013
  Serious: Yes (Other)
  Sender: FDA-Public Use
  Company Number: IE-BOEHRINGER INGELHEIM PHARMACEUTICALS, INC.-2005-DE-00722GD

PATIENT
  Sex: Female

DRUGS (2)
  1. NEVIRAPINE [Suspect]
     Indication: HIV INFECTION
     Dosage: 200 MG ONCE DAILY FOR THE FIRST 2 WEEKS, INCREASED TO 200 MG TWICE DAILY THEREAFTER
  2. COMBIVIR [Suspect]
     Indication: HIV INFECTION

REACTIONS (4)
  - DRUG EXPOSURE DURING PREGNANCY [None]
  - DRUG RESISTANCE [None]
  - HEPATOTOXICITY [None]
  - RASH [None]
